FAERS Safety Report 25285052 (Version 1)
Quarter: 2025Q2

REPORT INFORMATION
  Report Type: Spontaneous
  Country: JP (occurrence: JP)
  Receive Date: 20250508
  Receipt Date: 20250508
  Transmission Date: 20250717
  Serious: Yes (Other)
  Sender: GLAXOSMITHKLINE
  Company Number: JP-GSKJP-JP2025JPN053630AA

PATIENT

DRUGS (1)
  1. BENLYSTA [Suspect]
     Active Substance: BELIMUMAB
     Indication: Systemic lupus erythematosus

REACTIONS (8)
  - Interstitial lung disease [Unknown]
  - Polymyositis [Unknown]
  - Sjogren^s syndrome [Unknown]
  - Injection site pain [Unknown]
  - Collagen disorder [Unknown]
  - Cystitis interstitial [Unknown]
  - Bladder pain [Unknown]
  - Migraine [Unknown]
